FAERS Safety Report 22253734 (Version 1)
Quarter: 2023Q2

REPORT INFORMATION
  Report Type: Spontaneous
  Country: AU (occurrence: AU)
  Receive Date: 20230426
  Receipt Date: 20230426
  Transmission Date: 20230722
  Serious: Yes (Other)
  Sender: FDA-Public Use
  Company Number: AU-STRIDES ARCOLAB LIMITED-2023SP006021

PATIENT
  Age: 28 Year
  Sex: Male

DRUGS (5)
  1. DIAZEPAM [Suspect]
     Active Substance: DIAZEPAM
     Indication: Product used for unknown indication
     Dosage: UNK
     Route: 065
  2. METHIONINE [Concomitant]
     Active Substance: METHIONINE
     Indication: Pyelonephritis
     Dosage: UNK
     Route: 048
  3. NITROUS OXIDE [Concomitant]
     Active Substance: NITROUS OXIDE
     Indication: Product used for unknown indication
     Dosage: UNK (80-100 NANGS PER DAY, SUBSTANTIAL RECREATIONAL INHALATION)
  4. VITAMIN B12 [Concomitant]
     Active Substance: CYANOCOBALAMIN
     Indication: Pyelonephritis
     Dosage: 1 MILLIGRAM (2X1MG)
     Route: 030
  5. VITAMIN B12 [Concomitant]
     Active Substance: CYANOCOBALAMIN
     Dosage: UNK
     Route: 030

REACTIONS (1)
  - Intentional product misuse [Unknown]
